FAERS Safety Report 8592400-3 (Version None)
Quarter: 2012Q3

REPORT INFORMATION
  Report Type: 
  Country: None (occurrence: None)
  Receive Date: 20120814
  Receipt Date: 20120806
  Transmission Date: 20120928
  Serious: Yes (Hospitalization)
  Sender: FDA-Public Use
  Company Number: JP-BAYER-2012-077491

PATIENT
  Age: 79 Year
  Sex: Female
  Weight: 54.422 kg

DRUGS (9)
  1. NEXAVAR [Suspect]
     Indication: HEPATIC NEOPLASM MALIGNANT
     Dosage: 400 MG, QD
     Route: 048
     Dates: start: 20120720, end: 20120720
  2. URSO 250 [Concomitant]
     Indication: CHRONIC HEPATITIS
     Dosage: DAILY DOSE 900 MG
     Route: 048
     Dates: start: 20080401
  3. RABEPRAZOLE SODIUM [Concomitant]
     Indication: GASTROOESOPHAGEAL REFLUX DISEASE
     Dosage: DAILY DOSE 10 MG
     Route: 048
     Dates: start: 20080401
  4. ALCADOL [Concomitant]
     Indication: OSTEOPOROSIS
     Dosage: DAILY DOSE 1 ?G
     Route: 048
     Dates: start: 20080401
  5. LORAZEPAM [Concomitant]
     Indication: DEPRESSIVE SYMPTOM
     Dosage: DAILY DOSE .5 MG
     Route: 048
     Dates: start: 20080401
  6. DOGMATYL [Concomitant]
     Indication: DEPRESSIVE SYMPTOM
     Dosage: DAILY DOSE 50 MG
     Route: 048
     Dates: start: 20080401
  7. LIVACT [Concomitant]
     Indication: HYPOALBUMINAEMIA
     Dosage: DAILY DOSE 12.45 G
     Route: 048
     Dates: start: 20080401
  8. ALENDRONATE SODIUM [Concomitant]
     Indication: OSTEOPOROSIS
     Dosage: DAILY DOSE 35 MG
     Route: 048
     Dates: start: 20080401
  9. TRICHLORMETHIAZIDE [Concomitant]
     Indication: OEDEMA
     Dosage: DAILY DOSE 2 MG
     Route: 048
     Dates: start: 20080401

REACTIONS (6)
  - DIARRHOEA [None]
  - ABDOMINAL PAIN [None]
  - ABDOMINAL DISTENSION [None]
  - VOMITING [None]
  - SUBILEUS [None]
  - NAUSEA [None]
